FAERS Safety Report 6715945-7 (Version None)
Quarter: 2010Q2

REPORT INFORMATION
  Report Type: 
  Country: None (occurrence: None)
  Receive Date: 20100507
  Receipt Date: 20100428
  Transmission Date: 20101027
  Serious: Yes (Death)
  Sender: FDA-Public Use
  Company Number: BE-AMGEN-QUU404752

PATIENT
  Age: 87 Year
  Sex: Male

DRUGS (10)
  1. NEULASTA [Suspect]
     Indication: CHEMOTHERAPY
     Route: 065
  2. RITUXIMAB [Suspect]
     Route: 042
     Dates: start: 20080601
  3. CYCLOPHOSPHAMIDE [Concomitant]
  4. PRAVASTATIN [Concomitant]
  5. ALLOPURINOL [Concomitant]
  6. UNSPECIFIED MEDICATION [Concomitant]
  7. ANTIHYPERTENSIVE MEDICATION NOS [Concomitant]
  8. DOXORUBICIN HCL [Concomitant]
  9. VINCRISTINE [Concomitant]
  10. METHYLPREDNISOLONE 4MG TAB [Concomitant]
     Dates: start: 20080601

REACTIONS (2)
  - INTERSTITIAL LUNG DISEASE [None]
  - RESPIRATORY FAILURE [None]
